FAERS Safety Report 14334587 (Version 3)
Quarter: 2018Q1

REPORT INFORMATION
  Report Type: Report from Study
  Country: AT (occurrence: AT)
  Receive Date: 20171228
  Receipt Date: 20180207
  Transmission Date: 20180509
  Serious: Yes (Other)
  Sender: FDA-Public Use
  Company Number: AT-B.I. PHARMACEUTICALS,INC./RIDGEFIELD-2017-BI-068311

PATIENT
  Age: 52 Year
  Sex: Male
  Weight: 73 kg

DRUGS (6)
  1. BLINDED BIBF 1120 [Suspect]
     Active Substance: NINTEDANIB
     Route: 048
     Dates: start: 20171230
  2. FOLSAN [Concomitant]
     Active Substance: FOLIC ACID
     Indication: DRUG THERAPY
     Route: 048
     Dates: start: 20171125
  3. BLINDED BIBF 1120 [Suspect]
     Active Substance: NINTEDANIB
     Indication: PLEURAL MESOTHELIOMA MALIGNANT
     Route: 048
     Dates: start: 20171201
  4. PEMETREXED. [Concomitant]
     Active Substance: PEMETREXED
     Indication: PLEURAL MESOTHELIOMA MALIGNANT
     Route: 065
     Dates: start: 20171201
  5. PEMETREXED. [Concomitant]
     Active Substance: PEMETREXED
     Route: 065
     Dates: start: 20171229
  6. CISPLATIN. [Concomitant]
     Active Substance: CISPLATIN
     Indication: PLEURAL MESOTHELIOMA MALIGNANT
     Route: 065

REACTIONS (1)
  - Neutrophil count decreased [Recovered/Resolved]

NARRATIVE: CASE EVENT DATE: 20171222
